FAERS Safety Report 11705695 (Version 4)
Quarter: 2016Q3

REPORT INFORMATION
  Report Type: Report from Study
  Country: JP (occurrence: JP)
  Receive Date: 20151106
  Receipt Date: 20160802
  Transmission Date: 20161109
  Serious: Yes (Other)
  Sender: FDA-Public Use
  Company Number: JP-JNJFOC-20151101363

PATIENT
  Age: 50 Year
  Sex: Male

DRUGS (16)
  1. XEPLION [Suspect]
     Active Substance: PALIPERIDONE PALMITATE
     Indication: SCHIZOPHRENIA
     Dosage: LEFT GLUTEAL MUSCLE
     Route: 030
     Dates: start: 20160121, end: 20160121
  2. XEPLION [Suspect]
     Active Substance: PALIPERIDONE PALMITATE
     Indication: SCHIZOPHRENIA
     Dosage: LEFT GLUTEAL MUSCLE
     Route: 030
     Dates: start: 20160414, end: 20160414
  3. XEPLION [Suspect]
     Active Substance: PALIPERIDONE PALMITATE
     Indication: SCHIZOPHRENIA
     Dosage: LEFT GLUTEAL MUSCLE
     Route: 030
     Dates: start: 20160609, end: 20160609
  4. XEPLION [Suspect]
     Active Substance: PALIPERIDONE PALMITATE
     Indication: SCHIZOPHRENIA
     Dosage: LEFT GLUTEAL MUSCLE
     Route: 030
     Dates: start: 20150709, end: 20150709
  5. XEPLION [Suspect]
     Active Substance: PALIPERIDONE PALMITATE
     Indication: SCHIZOPHRENIA
     Dosage: LEFT GLUTEAL MUSCLE
     Route: 030
     Dates: start: 20150806, end: 20150806
  6. NESINA [Concomitant]
     Active Substance: ALOGLIPTIN BENZOATE
     Indication: DIABETES MELLITUS
     Route: 048
  7. XEPLION [Suspect]
     Active Substance: PALIPERIDONE PALMITATE
     Indication: SCHIZOPHRENIA
     Dosage: LEFT GLUTEAL MUSCLE
     Route: 030
     Dates: start: 20160218, end: 20160218
  8. XEPLION [Suspect]
     Active Substance: PALIPERIDONE PALMITATE
     Indication: SCHIZOPHRENIA
     Dosage: RIGHT GLUTEAL MUSCLE
     Route: 030
     Dates: start: 20160514, end: 20160514
  9. XEPLION [Suspect]
     Active Substance: PALIPERIDONE PALMITATE
     Indication: SCHIZOPHRENIA
     Dosage: RIGHT GLUTEAL MUSCLE
     Route: 030
     Dates: start: 20160707
  10. XEPLION [Suspect]
     Active Substance: PALIPERIDONE PALMITATE
     Indication: SCHIZOPHRENIA
     Dosage: LEFT GLUTEAL MUSCLE
     Route: 030
     Dates: start: 20151224, end: 20151224
  11. XEPLION [Suspect]
     Active Substance: PALIPERIDONE PALMITATE
     Indication: SCHIZOPHRENIA
     Dosage: LEFT GLUTEAL MUSCLE
     Route: 030
     Dates: start: 20160317, end: 20160317
  12. XEPLION [Suspect]
     Active Substance: PALIPERIDONE PALMITATE
     Indication: SCHIZOPHRENIA
     Dosage: LEFT GLUTEAL MUSCLE
     Route: 030
     Dates: start: 20150903, end: 20150903
  13. XEPLION [Suspect]
     Active Substance: PALIPERIDONE PALMITATE
     Indication: SCHIZOPHRENIA
     Dosage: LEFT GLUTEAL MUSCLE
     Route: 030
     Dates: start: 20151001, end: 20151001
  14. XEPLION [Suspect]
     Active Substance: PALIPERIDONE PALMITATE
     Indication: SCHIZOPHRENIA
     Dosage: RIGHT GLUTEAL MUSCLE
     Route: 030
     Dates: start: 20151126, end: 20151126
  15. XEPLION [Suspect]
     Active Substance: PALIPERIDONE PALMITATE
     Indication: SCHIZOPHRENIA
     Dosage: LEFT DELTOID MUSCLE
     Route: 030
     Dates: start: 20150611, end: 20150611
  16. XEPLION [Suspect]
     Active Substance: PALIPERIDONE PALMITATE
     Indication: SCHIZOPHRENIA
     Dosage: LEFT GLUTEAL MUSCLE
     Route: 030
     Dates: start: 20151029, end: 20151029

REACTIONS (1)
  - Diabetes mellitus [Not Recovered/Not Resolved]

NARRATIVE: CASE EVENT DATE: 201507
